FAERS Safety Report 6510761-3 (Version None)
Quarter: 2009Q4

REPORT INFORMATION
  Report Type: 
  Country: None (occurrence: None)
  Receive Date: 20091222
  Receipt Date: 20091125
  Transmission Date: 20100525
  Serious: Yes (Other)
  Sender: FDA-Public Use
  Company Number: GB-CVT-090363

PATIENT

DRUGS (14)
  1. RANEXA [Suspect]
     Indication: ANGINA PECTORIS
     Dosage: 500 MG, QD
     Route: 048
     Dates: start: 20090521, end: 20090521
  2. IVABRADINE [Concomitant]
     Dates: start: 20090515
  3. PREDNISOLONE                       /00016201/ [Concomitant]
  4. GLYCERYL TRINITRATE [Concomitant]
  5. ISOSORBIDE MONONITRATE [Concomitant]
  6. LANSOPRAZOLE [Concomitant]
  7. ATORVASTATIN CALCIUM [Concomitant]
  8. RAMIPRIL                           /00885601/ [Concomitant]
  9. RISEDRONIC ACID [Concomitant]
  10. SALBUTEROL [Concomitant]
  11. ASPIRIN [Concomitant]
  12. BUMETANIDE [Concomitant]
  13. LIPITOR                            /01326101/ [Concomitant]
  14. VENTOLIN [Concomitant]

REACTIONS (4)
  - ANGIOEDEMA [None]
  - DIZZINESS [None]
  - HYPERHIDROSIS [None]
  - PALPITATIONS [None]
